FAERS Safety Report 15793160 (Version 2)
Quarter: 2020Q1

REPORT INFORMATION
  Report Type: Spontaneous
  Country: US (occurrence: US)
  Receive Date: 20190107
  Receipt Date: 20200309
  Transmission Date: 20200409
  Serious: Yes (Other)
  Sender: FDA-Public Use
  Company Number: US-TORRENT-00007380

PATIENT
  Age: 71 Year
  Sex: Male
  Weight: 108 kg

DRUGS (1)
  1. LOSARTAN. [Suspect]
     Active Substance: LOSARTAN
     Indication: PRODUCT USED FOR UNKNOWN INDICATION
     Dosage: 100 MG

REACTIONS (4)
  - Liver disorder [Recovered/Resolved]
  - Gallbladder disorder [Recovered/Resolved]
  - Renal cyst [Recovered/Resolved]
  - Cholecystectomy [Unknown]

NARRATIVE: CASE EVENT DATE: 2019
